FAERS Safety Report 23145606 (Version 2)
Quarter: 2023Q4

REPORT INFORMATION
  Report Type: Spontaneous
  Country: US (occurrence: US)
  Receive Date: 20231103
  Receipt Date: 20231122
  Transmission Date: 20240109
  Serious: No
  Sender: FDA-Public Use
  Company Number: US-BAUSCH-BL-2023-016325

PATIENT
  Age: 74 Year
  Sex: Female
  Weight: 61.29 kg

DRUGS (2)
  1. ATIVAN [Suspect]
     Active Substance: LORAZEPAM
     Indication: Insomnia
     Route: 048
     Dates: start: 2023
  2. ATIVAN [Suspect]
     Active Substance: LORAZEPAM
     Indication: Product use in unapproved indication
     Route: 048
     Dates: start: 2023

REACTIONS (4)
  - Malaise [Unknown]
  - Middle insomnia [Unknown]
  - Product quality issue [Unknown]
  - Product availability issue [Unknown]

NARRATIVE: CASE EVENT DATE: 20230101
